FAERS Safety Report 8223372-9 (Version None)
Quarter: 2012Q1

REPORT INFORMATION
  Report Type: 
  Country: None (occurrence: None)
  Receive Date: 20120313
  Receipt Date: 20120222
  Transmission Date: 20120608
  Serious: Yes (Hospitalization, Disabling)
  Sender: FDA-Public Use
  Company Number: DSA_55257_2012

PATIENT
  Age: 74 Year
  Sex: Female

DRUGS (20)
  1. FLAGYL [Suspect]
     Indication: CLOSTRIDIAL INFECTION
     Dosage: 500 MG TID ORAL, DF
     Route: 048
     Dates: start: 20080506, end: 20080602
  2. ULTRA-LEVURE [Concomitant]
  3. POTASSIUM CHLORIDE [Concomitant]
  4. ACUPAN [Concomitant]
  5. MOTILIUM [Concomitant]
  6. REMICADE [Suspect]
     Indication: COLITIS ULCERATIVE
     Dosage: 1 DF 1X INTRAVENOUS (NOT OTHERWISE SPECIFIED, 1 DF 1X INTRAVENOUS (NOT OTHERWISE SPECIFIED)
     Route: 042
     Dates: start: 20080429, end: 20080429
  7. REMICADE [Suspect]
     Indication: COLITIS ULCERATIVE
     Dosage: 1 DF 1X INTRAVENOUS (NOT OTHERWISE SPECIFIED, 1 DF 1X INTRAVENOUS (NOT OTHERWISE SPECIFIED)
     Route: 042
     Dates: start: 20080416, end: 20080416
  8. PHLOROGLUCINOL [Concomitant]
  9. NEXIUM [Concomitant]
  10. LOVENOX [Concomitant]
  11. ACETAMINOPHEN [Concomitant]
  12. PENTASA [Concomitant]
  13. PLASMA-LYTE 56 AND DEXTROSE 5% IN PLASTIC CONTAINER [Concomitant]
  14. PRIMPERAN TAB [Concomitant]
  15. CIPROFLOXACIN [Concomitant]
  16. LEXOMIL [Concomitant]
  17. AZATHIOPRINE [Suspect]
     Indication: COLITIS ULCERATIVE
     Dosage: DF
     Dates: start: 20080416, end: 20080501
  18. HUMIRA [Suspect]
     Indication: COLITIS ULCERATIVE
     Dosage: 80 MG 1X SUBCUTANEOUS
     Route: 058
     Dates: start: 20080528, end: 20080528
  19. SPASFON [Concomitant]
  20. FUNGIZONE [Concomitant]

REACTIONS (29)
  - LEUKOENCEPHALOPATHY [None]
  - VASCULITIS [None]
  - ATAXIA [None]
  - MOTOR DYSFUNCTION [None]
  - ANTIMITOCHONDRIAL ANTIBODY POSITIVE [None]
  - DRUG INEFFECTIVE [None]
  - SENSORY DISTURBANCE [None]
  - HYPOREFLEXIA [None]
  - PAIN [None]
  - GAIT DISTURBANCE [None]
  - PARAESTHESIA [None]
  - PERIPHERAL SENSORY NEUROPATHY [None]
  - DRUG INTOLERANCE [None]
  - PAIN IN EXTREMITY [None]
  - BILIARY CIRRHOSIS [None]
  - NERVOUS SYSTEM DISORDER [None]
  - BALANCE DISORDER [None]
  - CLOSTRIDIAL INFECTION [None]
  - BLOOD CORTISOL DECREASED [None]
  - BLOOD CORTICOTROPHIN DECREASED [None]
  - AREFLEXIA [None]
  - HYPOAESTHESIA [None]
  - ACTIVITIES OF DAILY LIVING IMPAIRED [None]
  - PARAPARESIS [None]
  - PANCREATITIS [None]
  - ANTINEUTROPHIL CYTOPLASMIC ANTIBODY POSITIVE [None]
  - SURGICAL FAILURE [None]
  - DIPLOPIA [None]
  - CEREBRAL SMALL VESSEL ISCHAEMIC DISEASE [None]
